FAERS Safety Report 14576833 (Version 2)
Quarter: 2018Q1

REPORT INFORMATION
  Report Type: Spontaneous
  Country: US (occurrence: US)
  Receive Date: 20180227
  Receipt Date: 20180301
  Transmission Date: 20180509
  Serious: Yes (Death, Hospitalization, Other)
  Sender: FDA-Public Use
  Company Number: US-ASTELLAS-2018US010110

PATIENT
  Age: 70 Year
  Sex: Male

DRUGS (3)
  1. TACROLIMUS. [Suspect]
     Active Substance: TACROLIMUS
     Indication: LIVER TRANSPLANT
     Dosage: UNK, UNKNOWN FREQ.
     Route: 065
     Dates: end: 201611
  2. SORAFENIB                          /01632502/ [Concomitant]
     Indication: HEPATOCELLULAR CARCINOMA
     Dosage: UNK UNK, CYCLIC, 4 CYCLES
     Route: 065
     Dates: start: 2014, end: 2014
  3. CAPECITABINE. [Suspect]
     Active Substance: CAPECITABINE
     Indication: HEPATOCELLULAR CARCINOMA
     Dosage: UNK, UNKNOWN FREQ.
     Route: 065

REACTIONS (10)
  - Death [Fatal]
  - Chronic kidney disease [Unknown]
  - Hyperbilirubinaemia [Unknown]
  - Metabolic acidosis [Unknown]
  - Hepatocellular carcinoma [Unknown]
  - Disease progression [Unknown]
  - Drug interaction [Unknown]
  - Metastases to lung [Unknown]
  - Retroperitoneal mass [Unknown]
  - Immunosuppressant drug level increased [Unknown]

NARRATIVE: CASE EVENT DATE: 201401
